FAERS Safety Report 8466161-2 (Version None)
Quarter: 2012Q2

REPORT INFORMATION
  Report Type: 
  Country: None (occurrence: None)
  Receive Date: 20120626
  Receipt Date: 20120618
  Transmission Date: 20120825
  Serious: Yes (Other)
  Sender: FDA-Public Use
  Company Number: US-ASTRAZENECA-2012SE37839

PATIENT
  Age: 84 Year
  Sex: Female

DRUGS (1)
  1. NEXIUM [Suspect]
     Indication: GASTROOESOPHAGEAL REFLUX DISEASE
     Dosage: TWO TIMES A DAY, WITH A TOTAL DAILY DOSE OF 40 MILLIGRAMS
     Route: 048

REACTIONS (2)
  - CATARACT [None]
  - INAPPROPRIATE SCHEDULE OF DRUG ADMINISTRATION [None]
